FAERS Safety Report 6094052-3 (Version None)
Quarter: 2009Q1

REPORT INFORMATION
  Report Type: 
  Country: None (occurrence: None)
  Receive Date: 20090226
  Receipt Date: 20090223
  Transmission Date: 20090719
  Serious: Yes (Hospitalization)
  Sender: FDA-Public Use
  Company Number: FR-JNJFOC-20090205529

PATIENT
  Age: 67 Year
  Sex: Female

DRUGS (6)
  1. OFLOCET [Suspect]
     Indication: INFECTION PROPHYLAXIS
     Route: 048
  2. PROFENID [Suspect]
     Indication: PROCEDURAL PAIN
     Route: 048
  3. BIPROFENID [Suspect]
     Indication: PROCEDURAL PAIN
     Route: 048
  4. PYOSTACINE [Suspect]
     Indication: INFECTION PROPHYLAXIS
     Route: 048
  5. LOVENOX [Suspect]
     Indication: PROPHYLAXIS
     Route: 065
  6. CETIRIZINE WINTHROP [Suspect]
     Indication: DRUG USE FOR UNKNOWN INDICATION
     Route: 048

REACTIONS (3)
  - ARTHRALGIA [None]
  - ERYSIPELAS [None]
  - TOXIC SKIN ERUPTION [None]
